FAERS Safety Report 15867130 (Version 2)
Quarter: 2019Q1

REPORT INFORMATION
  Report Type: Spontaneous
  Country: ES (occurrence: ES)
  Receive Date: 20190125
  Receipt Date: 20190204
  Transmission Date: 20190417
  Serious: No
  Sender: FDA-Public Use
  Company Number: ES-JNJFOC-20190130041

PATIENT
  Sex: Male

DRUGS (1)
  1. INVOKANA [Suspect]
     Active Substance: CANAGLIFLOZIN
     Indication: TYPE 1 DIABETES MELLITUS
     Route: 065
     Dates: end: 201901

REACTIONS (2)
  - Off label use [Unknown]
  - Product use in unapproved indication [Unknown]
